FAERS Safety Report 7344125-X (Version None)
Quarter: 2011Q1

REPORT INFORMATION
  Report Type: 
  Country: None (occurrence: None)
  Receive Date: 20110310
  Receipt Date: 20100625
  Transmission Date: 20110831
  Serious: No
  Sender: FDA-Public Use
  Company Number: A0867136A

PATIENT
  Age: 25 Year
  Sex: Female

DRUGS (1)
  1. NICORETTE (MINT) [Suspect]
     Dates: start: 20100625, end: 20100625

REACTIONS (3)
  - DYSGEUSIA [None]
  - VOMITING [None]
  - GLOSSODYNIA [None]
